FAERS Safety Report 13403912 (Version 1)
Quarter: 2017Q2

REPORT INFORMATION
  Report Type: Report from Study
  Country: US (occurrence: US)
  Receive Date: 20170405
  Receipt Date: 20170405
  Transmission Date: 20170830
  Serious: Yes (Hospitalization)
  Sender: FDA-Public Use
  Company Number: US-BIOGEN-2009BI018547

PATIENT
  Sex: Female
  Weight: 65.83 kg

DRUGS (9)
  1. TYSABRI [Suspect]
     Active Substance: NATALIZUMAB
     Indication: MULTIPLE SCLEROSIS
     Route: 042
     Dates: start: 20061120, end: 20140905
  2. SANCTURA [Concomitant]
     Active Substance: TROSPIUM CHLORIDE
     Indication: BLADDER SPASM
     Route: 065
  3. WELLBUTRIN [Concomitant]
     Active Substance: BUPROPION HYDROCHLORIDE
     Indication: DEPRESSION
     Route: 065
     Dates: start: 1997
  4. XANAX [Concomitant]
     Active Substance: ALPRAZOLAM
     Indication: ANXIETY
     Route: 065
  5. SYNTHROID [Concomitant]
     Active Substance: LEVOTHYROXINE SODIUM
     Indication: HYPOTHYROIDISM
     Route: 065
     Dates: start: 2001
  6. PREVACID [Concomitant]
     Active Substance: LANSOPRAZOLE
     Indication: GASTROOESOPHAGEAL REFLUX DISEASE
     Route: 065
     Dates: start: 1998
  7. CYMBALTA [Concomitant]
     Active Substance: DULOXETINE HYDROCHLORIDE
     Indication: DEPRESSION
     Route: 065
     Dates: start: 1997
  8. TYSABRI [Suspect]
     Active Substance: NATALIZUMAB
     Route: 065
     Dates: start: 20160226, end: 20160325
  9. NORVASC [Concomitant]
     Active Substance: AMLODIPINE BESYLATE
     Indication: OESOPHAGEAL SPASM
     Route: 065
     Dates: start: 1999

REACTIONS (19)
  - Cellulitis [Recovered/Resolved]
  - Ligament injury [Unknown]
  - Radius fracture [Recovered/Resolved]
  - Supraventricular tachycardia [Unknown]
  - Stress [Unknown]
  - Lethargy [Not Recovered/Not Resolved]
  - Fall [Recovered/Resolved]
  - Narcolepsy [Not Recovered/Not Resolved]
  - Neuropathy peripheral [Not Recovered/Not Resolved]
  - Device dislocation [Unknown]
  - Investigation abnormal [Unknown]
  - Dizziness [Not Recovered/Not Resolved]
  - Wrist fracture [Recovered/Resolved]
  - Intervertebral disc protrusion [Not Recovered/Not Resolved]
  - Loss of consciousness [Unknown]
  - Overdose [Unknown]
  - Insomnia [Unknown]
  - Osteoporosis [Recovered/Resolved]
  - Ligament rupture [Unknown]

NARRATIVE: CASE EVENT DATE: 2006
